FAERS Safety Report 20015981 (Version 1)
Quarter: 2021Q4

REPORT INFORMATION
  Report Type: Spontaneous
  Country: US (occurrence: None)
  Receive Date: 20211102
  Receipt Date: 20211102
  Transmission Date: 20220303
  Serious: Yes (Death)
  Sender: FDA-Public Use
  Company Number: None

PATIENT
  Age: 80 Year
  Sex: Male
  Weight: 112.8 kg

DRUGS (10)
  1. ANDEXANET ALFA [Suspect]
     Active Substance: ANDEXANET ALFA
     Dosage: OTHER FREQUENCY : ONCE;?
     Route: 041
  2. Aztreonam 2g/10mL IV piggyback once [Concomitant]
     Dates: start: 20210923, end: 20210923
  3. Insulin regular 10U/0.1mL SQ once [Concomitant]
     Dates: start: 20210923, end: 20210923
  4. Insulin regular 100U + 0.9% Normal Saline (premix) 100mL solution infu [Concomitant]
     Dates: start: 20210923, end: 20210923
  5. Lactated ringers 3384mL sepsis bolus IV infusion [Concomitant]
     Dates: start: 20210923, end: 20210923
  6. Metoprolol 5mg/5mL IV piggyback once [Concomitant]
     Dates: start: 20210923, end: 20210923
  7. Metronidazole 500mg/100mL IV piggyback once [Concomitant]
     Dates: start: 20210923, end: 20210923
  8. Morphine 4mg/mL IV push once [Concomitant]
     Dates: start: 20210923, end: 20210923
  9. Ondansetron 4mg/2mL IV push once [Concomitant]
     Dates: start: 20210923, end: 20210923
  10. Promethazine 6.25mg/0.25mL IV push once [Concomitant]
     Dates: start: 20210923, end: 20210923

REACTIONS (5)
  - Acute myocardial infarction [None]
  - Shock [None]
  - Vascular occlusion [None]
  - Ventricular tachycardia [None]
  - Pulseless electrical activity [None]

NARRATIVE: CASE EVENT DATE: 20210923
